FAERS Safety Report 13361738 (Version 1)
Quarter: 2017Q1

REPORT INFORMATION
  Report Type: Spontaneous
  Country: US (occurrence: US)
  Receive Date: 20170321
  Receipt Date: 20170321
  Transmission Date: 20170429
  Serious: Yes (Hospitalization)
  Sender: FDA-Public Use
  Company Number: None

PATIENT
  Age: 54 Year
  Sex: Female
  Weight: 68 kg

DRUGS (1)
  1. ULTRAVIST [Suspect]
     Active Substance: IOPROMIDE
     Indication: HODGKIN^S DISEASE
     Route: 042
     Dates: start: 20170315

REACTIONS (5)
  - Pruritus [None]
  - Dysphonia [None]
  - Nausea [None]
  - Paraesthesia oral [None]
  - Cough [None]

NARRATIVE: CASE EVENT DATE: 20170315
